FAERS Safety Report 7625463-X (Version None)
Quarter: 2011Q3

REPORT INFORMATION
  Report Type: 
  Country: None (occurrence: None)
  Receive Date: 20110721
  Receipt Date: 20110711
  Transmission Date: 20111222
  Serious: Yes (Hospitalization, Other)
  Sender: FDA-Public Use
  Company Number: US-BAYER-2011-018427

PATIENT
  Age: 17 Year
  Sex: Female
  Weight: 111.11 kg

DRUGS (7)
  1. YAZ [Suspect]
     Indication: MENSTRUAL CYCLE MANAGEMENT
  2. TYLENOL-500 [Concomitant]
     Indication: PAIN
  3. YAZ [Suspect]
     Indication: CONTRACEPTION
     Dosage: UNK
     Route: 048
     Dates: start: 20080601, end: 20090601
  4. AMOXICILLIN [Concomitant]
     Dosage: 500 MG, TID
     Dates: start: 20090623, end: 20090627
  5. LOVENOX [Concomitant]
     Dosage: UNK
     Route: 058
     Dates: start: 20090618
  6. IRON SULFATETHIAMIN COMPOUND TAB [Concomitant]
     Indication: ANAEMIA
     Dosage: 325 MG, TID
  7. ROCEPHIN [Concomitant]
     Indication: LEUKOCYTOSIS
     Dosage: UNK
     Dates: start: 20090616

REACTIONS (10)
  - CHOLELITHIASIS [None]
  - GALLBLADDER DISORDER [None]
  - PAIN [None]
  - PULMONARY EMBOLISM [None]
  - CHOLECYSTITIS CHRONIC [None]
  - DYSPEPSIA [None]
  - INJURY [None]
  - PULMONARY INFARCTION [None]
  - DYSPNOEA [None]
  - EMOTIONAL DISTRESS [None]
